FAERS Safety Report 10373270 (Version 2)
Quarter: 2014Q4

REPORT INFORMATION
  Report Type: Spontaneous
  Country: PR (occurrence: PR)
  Receive Date: 20140808
  Receipt Date: 20141205
  Transmission Date: 20150528
  Serious: No
  Sender: FDA-Public Use
  Company Number: PR-BRISTOL-MYERS SQUIBB COMPANY-20377198

PATIENT
  Age: 72 Year
  Sex: Female
  Weight: 75.28 kg

DRUGS (5)
  1. CATAPRESSAN [Concomitant]
     Active Substance: CLONIDINE
  2. LOSARTAN [Concomitant]
     Active Substance: LOSARTAN
  3. METOPROLOL [Concomitant]
     Active Substance: METOPROLOL
  4. SPRYCEL [Suspect]
     Active Substance: DASATINIB
     Indication: CHRONIC MYELOID LEUKAEMIA
     Route: 048
     Dates: start: 2013
  5. LIPITOR [Concomitant]
     Active Substance: ATORVASTATIN CALCIUM

REACTIONS (5)
  - Headache [Not Recovered/Not Resolved]
  - Dyspnoea [Unknown]
  - Abdominal pain upper [Not Recovered/Not Resolved]
  - Fluid retention [Unknown]
  - Fatigue [Not Recovered/Not Resolved]

NARRATIVE: CASE EVENT DATE: 201403
